FAERS Safety Report 6371659-7 (Version None)
Quarter: 2009Q3

REPORT INFORMATION
  Report Type: 
  Country: None (occurrence: None)
  Receive Date: 20090923
  Receipt Date: 20080603
  Transmission Date: 20100115
  Serious: No
  Sender: FDA-Public Use
  Company Number: US-ASTRAZENECA-2008UW00347

PATIENT
  Age: 620 Month
  Sex: Female
  Weight: 107 kg

DRUGS (20)
  1. SEROQUEL [Suspect]
     Indication: SCHIZOPHRENIA
     Route: 048
     Dates: start: 19890911
  2. SEROQUEL [Suspect]
     Dosage: 200 MG TO 800 MG
     Route: 048
     Dates: start: 20030326
  3. METFORMIN HCL [Concomitant]
  4. GLYBURIDE [Concomitant]
  5. FLAGYL [Concomitant]
     Route: 048
  6. NEXIUM [Concomitant]
     Route: 048
  7. HYDROCODONE AND PARACETAMOL [Concomitant]
     Dosage: 5 MG/500 MG
     Route: 048
  8. KLOR-CON [Concomitant]
     Route: 048
  9. RANITIDINE [Concomitant]
     Route: 048
  10. RANITIDINE [Concomitant]
     Route: 048
  11. ZOCOR [Concomitant]
     Route: 048
  12. DYAZIDE [Concomitant]
     Indication: HYPERTENSION
     Dosage: 37.5 MG (TRIAMTERINE) AND 25 MG (HYDROCHLOROTHIAZIDE)
     Route: 048
  13. TYLENOL (CAPLET) [Concomitant]
     Indication: PAIN
     Route: 048
  14. DIFLUCAN [Concomitant]
     Indication: VAGINAL INFECTION
     Route: 048
  15. MICONAZOLE [Concomitant]
     Indication: VAGINAL INFECTION
     Route: 061
  16. PREDNISOLONE [Concomitant]
     Route: 048
  17. HYDROXYZINE [Concomitant]
     Route: 048
  18. MYCOLOG [Concomitant]
     Indication: VAGINAL INFECTION
  19. LOTRIMIN AF [Concomitant]
  20. KEFLEX [Concomitant]
     Route: 048

REACTIONS (7)
  - BLOOD CHOLESTEROL INCREASED [None]
  - BLOOD TRIGLYCERIDES INCREASED [None]
  - DIABETES MELLITUS [None]
  - EATING DISORDER [None]
  - HYPERTENSION [None]
  - ILL-DEFINED DISORDER [None]
  - WEIGHT INCREASED [None]
